FAERS Safety Report 14583480 (Version 1)
Quarter: 2018Q1

REPORT INFORMATION
  Report Type: Spontaneous
  Country: US (occurrence: US)
  Receive Date: 20180227
  Receipt Date: 20180227
  Transmission Date: 20180509
  Serious: Yes (Hospitalization)
  Sender: FDA-Public Use
  Company Number: None

PATIENT
  Sex: Male

DRUGS (15)
  1. REVATIO [Suspect]
     Active Substance: SILDENAFIL CITRATE
     Indication: PULMONARY ARTERIAL HYPERTENSION
     Route: 048
     Dates: start: 20161210
  2. GLIMEPIRIDE. [Concomitant]
     Active Substance: GLIMEPIRIDE
  3. LIPITOR [Concomitant]
     Active Substance: ATORVASTATIN CALCIUM
  4. FENOFIBRATE. [Concomitant]
     Active Substance: FENOFIBRATE
  5. MAGNESIUM [Concomitant]
     Active Substance: MAGNESIUM
  6. TYLENOL [Concomitant]
     Active Substance: ACETAMINOPHEN
  7. DILTIAZEM. [Concomitant]
     Active Substance: DILTIAZEM
  8. TRACLEER [Concomitant]
     Active Substance: BOSENTAN
  9. LYRICA [Concomitant]
     Active Substance: PREGABALIN
  10. POTASSIUM [Concomitant]
     Active Substance: POTASSIUM
  11. VASCEPA [Concomitant]
     Active Substance: ICOSAPENT ETHYL
  12. FUROSEMIDE. [Concomitant]
     Active Substance: FUROSEMIDE
  13. SPIRIVA [Concomitant]
     Active Substance: TIOTROPIUM BROMIDE MONOHYDRATE
  14. METOPROLOL TARTRATE. [Concomitant]
     Active Substance: METOPROLOL TARTRATE
  15. WARFARIN [Concomitant]
     Active Substance: WARFARIN

REACTIONS (1)
  - Hospitalisation [None]
